FAERS Safety Report 6679513-8 (Version None)
Quarter: 2010Q2

REPORT INFORMATION
  Report Type: 
  Country: None (occurrence: None)
  Receive Date: 20100413
  Receipt Date: 20100405
  Transmission Date: 20101027
  Serious: Yes (Other)
  Sender: FDA-Public Use
  Company Number: A0854362A

PATIENT
  Sex: Male
  Weight: 75 kg

DRUGS (1)
  1. NIQUITIN 7MG [Suspect]
     Indication: SMOKING CESSATION THERAPY
     Dosage: 1PAT PER DAY
     Route: 062
     Dates: start: 20100201

REACTIONS (2)
  - AGGRESSION [None]
  - DRUG ADMINISTRATION ERROR [None]
